FAERS Safety Report 7721803-1 (Version None)
Quarter: 2011Q3

REPORT INFORMATION
  Report Type: 
  Country: None (occurrence: None)
  Receive Date: 20110831
  Receipt Date: 20110825
  Transmission Date: 20111222
  Serious: Yes (Other)
  Sender: FDA-Public Use
  Company Number: US-BAYER-2011-079410

PATIENT
  Sex: Female

DRUGS (2)
  1. YAZ [Suspect]
     Dosage: UNK
     Dates: start: 20070701, end: 20080901
  2. YASMIN [Suspect]
     Dosage: UNK
     Dates: start: 20070701, end: 20080901

REACTIONS (1)
  - DEEP VEIN THROMBOSIS [None]
